FAERS Safety Report 16649018 (Version 1)
Quarter: 2019Q3

REPORT INFORMATION
  Report Type: Report from Study
  Country: US (occurrence: US)
  Receive Date: 20190730
  Receipt Date: 20190730
  Transmission Date: 20191004
  Serious: Yes (Hospitalization, Other)
  Sender: FDA-Public Use
  Company Number: US-JNJFOC-20190732783

PATIENT
  Sex: Female

DRUGS (12)
  1. VITAMIN D NOS [Concomitant]
     Active Substance: VITAMIN D NOS
  2. MICONAZOLE. [Concomitant]
     Active Substance: MICONAZOLE
  3. RANITIDINE. [Concomitant]
     Active Substance: RANITIDINE
  4. ASPIRIN                            /00002701/ [Concomitant]
     Active Substance: ASPIRIN
  5. MULTIVITAMIN                       /00097801/ [Concomitant]
     Active Substance: VITAMINS
  6. PARACETAMOL [Concomitant]
     Active Substance: ACETAMINOPHEN
  7. LEVOTHYROXINE. [Concomitant]
     Active Substance: LEVOTHYROXINE
  8. IMBRUVICA [Suspect]
     Active Substance: IBRUTINIB
     Indication: CHRONIC LYMPHOCYTIC LEUKAEMIA
     Dosage: 420 MG, QD
     Route: 048
     Dates: start: 20190116
  9. LORATADINE. [Concomitant]
     Active Substance: LORATADINE
  10. AMIODARONE [Concomitant]
     Active Substance: AMIODARONE
  11. RIVAROXABAN [Concomitant]
     Active Substance: RIVAROXABAN
  12. ANASTROZOLE. [Concomitant]
     Active Substance: ANASTROZOLE

REACTIONS (2)
  - Pneumonia [Unknown]
  - Blood count abnormal [Unknown]
